FAERS Safety Report 9248318 (Version 1)
Quarter: 2013Q2

REPORT INFORMATION
  Report Type: Spontaneous
  Country: US (occurrence: None)
  Receive Date: 20130419
  Receipt Date: 20130419
  Transmission Date: 20140414
  Serious: No
  Sender: FDA-Public Use
  Company Number: None

PATIENT
  Age: 53 Year
  Sex: Female
  Weight: 77.11 kg

DRUGS (1)
  1. SALONPAS PAIN RELIEVING PATCH -L [Suspect]
     Indication: NECK PAIN
     Dosage: 1 PATCH 3-4X/DAY X 7 DAYS TRANSDERMAL
     Route: 062
     Dates: start: 20130308, end: 20130314

REACTIONS (1)
  - Rash [None]
